FAERS Safety Report 15533575 (Version 1)
Quarter: 2018Q4

REPORT INFORMATION
  Report Type: Spontaneous
  Country: DE (occurrence: DE)
  Receive Date: 20181019
  Receipt Date: 20181019
  Transmission Date: 20190205
  Serious: Yes (Hospitalization, Other)
  Sender: FDA-Public Use
  Company Number: DE-SA-2018SA255588

PATIENT
  Age: 56 Year
  Sex: Female

DRUGS (2)
  1. METHYLPREDNISOLONE. [Concomitant]
     Active Substance: METHYLPREDNISOLONE
     Dosage: 1 G
     Route: 042
     Dates: start: 20180621, end: 20180625
  2. AUBAGIO [Suspect]
     Active Substance: TERIFLUNOMIDE
     Indication: MULTIPLE SCLEROSIS
     Dosage: 14 MG, QD
     Route: 048
     Dates: start: 20180703, end: 20180718

REACTIONS (10)
  - Alanine aminotransferase increased [Recovering/Resolving]
  - Aspartate aminotransferase increased [Recovering/Resolving]
  - Vomiting [Recovering/Resolving]
  - Drug-induced liver injury [Recovering/Resolving]
  - Chromaturia [Recovering/Resolving]
  - Abdominal pain upper [Recovering/Resolving]
  - Gamma-glutamyltransferase increased [Recovering/Resolving]
  - Faeces discoloured [Recovering/Resolving]
  - Nausea [Recovering/Resolving]
  - Jaundice [Recovering/Resolving]

NARRATIVE: CASE EVENT DATE: 2018
